FAERS Safety Report 11092428 (Version 1)
Quarter: 2015Q2

REPORT INFORMATION
  Report Type: Spontaneous
  Country: IT (occurrence: None)
  Receive Date: 20150504
  Receipt Date: 20150504
  Transmission Date: 20150821
  Serious: Yes (Death)
  Sender: FDA-Public Use
  Company Number: 2841127

PATIENT
  Age: 63 Year
  Sex: Female
  Weight: 72 kg

DRUGS (7)
  1. OLPRESS [Concomitant]
     Active Substance: OLMESARTAN MEDOXOMIL
  2. DEXAMETHASONE PHOSPHATE [Concomitant]
     Active Substance: DEXAMETHASONE PHOSPHATE
  3. LUCEN [Concomitant]
     Active Substance: ESOMEPRAZOLE
  4. DOCETAXEL. [Suspect]
     Active Substance: DOCETAXEL
     Indication: BREAST CANCER
     Dosage: NOT OTHERWISE SPECIFIED??SQ.METER
     Route: 042
     Dates: start: 20150401, end: 20150401
  5. CYCLOPHOSPHAMIDE. [Concomitant]
     Active Substance: CYCLOPHOSPHAMIDE
  6. LETROZOLE. [Concomitant]
     Active Substance: LETROZOLE
  7. ONDANSETRON [Concomitant]
     Active Substance: ONDANSETRON

REACTIONS (1)
  - Neutropenic colitis [None]

NARRATIVE: CASE EVENT DATE: 20150410
